FAERS Safety Report 4433727-6 (Version None)
Quarter: 2004Q3

REPORT INFORMATION
  Report Type: 
  Country: None (occurrence: None)
  Receive Date: 20040826
  Receipt Date: 20040819
  Transmission Date: 20050211
  Serious: Yes (Life-Threatening, Hospitalization)
  Sender: FDA-Public Use
  Company Number: CA-MERCK-0408CAN00081

PATIENT
  Age: 70 Year
  Sex: Male

DRUGS (6)
  1. ACETAMINOPHEN AND CODEINE PHOSPHATE [Concomitant]
     Route: 065
     Dates: start: 19800101
  2. PROSCAR [Suspect]
     Indication: BENIGN PROSTATIC HYPERPLASIA
     Route: 048
     Dates: start: 20040518
  3. GLYBURIDE [Concomitant]
     Route: 065
     Dates: start: 19850101
  4. KETOPROFEN [Concomitant]
     Route: 065
     Dates: start: 19800101
  5. METFORMIN HYDROCHLORIDE [Concomitant]
     Route: 065
     Dates: start: 19850101
  6. OMEPRAZOLE [Concomitant]
     Route: 065
     Dates: start: 19850101

REACTIONS (7)
  - ACUTE CORONARY SYNDROME [None]
  - ANGINA UNSTABLE [None]
  - BLOOD PRESSURE SYSTOLIC INCREASED [None]
  - BUNDLE BRANCH BLOCK RIGHT [None]
  - CHEST PAIN [None]
  - DILATATION ATRIAL [None]
  - GASTROOESOPHAGEAL REFLUX DISEASE [None]
